FAERS Safety Report 18059126 (Version 1)
Quarter: 2020Q3

REPORT INFORMATION
  Report Type: Spontaneous
  Country: US (occurrence: US)
  Receive Date: 20200722
  Receipt Date: 20200722
  Transmission Date: 20201103
  Serious: No
  Sender: FDA-Public Use
  Company Number: None

PATIENT
  Age: 65 Year
  Sex: Female
  Weight: 60.78 kg

DRUGS (1)
  1. ZOLEDRONIC ACID 5MG/100ML , 5MG,/100ML [Suspect]
     Active Substance: ZOLEDRONIC ACID
     Indication: OSTEOPOROSIS
     Dosage: ?          OTHER FREQUENCY:EVERY YEAR;?
     Route: 042

REACTIONS (2)
  - Infection [None]
  - Crohn^s disease [None]
